FAERS Safety Report 7010414-1 (Version None)
Quarter: 2010Q3

REPORT INFORMATION
  Report Type: 
  Country: None (occurrence: None)
  Receive Date: 20100923
  Receipt Date: 20100810
  Transmission Date: 20110219
  Serious: No
  Sender: FDA-Public Use
  Company Number: US-BAUSCH-2010BL004429

PATIENT
  Sex: Male

DRUGS (4)
  1. BESIVANCE [Suspect]
     Indication: PROPHYLAXIS
     Route: 047
     Dates: start: 20100810, end: 20100810
  2. ALPHAGAN [Concomitant]
     Indication: GLAUCOMA
     Route: 047
  3. XALATAN /SWE/ [Concomitant]
     Indication: GLAUCOMA
     Route: 047
  4. COSOPT [Concomitant]
     Indication: GLAUCOMA
     Route: 047

REACTIONS (3)
  - CONDITION AGGRAVATED [None]
  - VISION BLURRED [None]
  - WRONG TECHNIQUE IN DRUG USAGE PROCESS [None]
